FAERS Safety Report 6240946-5 (Version None)
Quarter: 2009Q2

REPORT INFORMATION
  Report Type: 
  Country: None (occurrence: None)
  Receive Date: 20090619
  Receipt Date: 20090604
  Transmission Date: 20091009
  Serious: Yes (Life-Threatening, Hospitalization)
  Sender: FDA-Public Use
  Company Number: 2008AL011501

PATIENT
  Age: 57 Year
  Sex: Female

DRUGS (18)
  1. DIGOXIN [Suspect]
     Indication: HEART RATE IRREGULAR
     Dosage: 0.25MG, DAILY, PO
     Route: 048
     Dates: start: 20070101, end: 20071231
  2. ALPRAZOLAM [Concomitant]
  3. OXYBUTYNIN CHLORIDE [Concomitant]
  4. KLOR-CON [Concomitant]
  5. SIMVASTATIN [Concomitant]
  6. ACTOS [Concomitant]
  7. HYDROCODONE BITARTRATE [Concomitant]
  8. RANITIDINE [Concomitant]
  9. SULFAMETHOXAZOLE AND TRIMETHOPRIM [Concomitant]
  10. CARTIA XT [Concomitant]
  11. CLOTRIMAZOLE [Concomitant]
  12. CLONIDINE [Concomitant]
  13. FUROSEMIDE INTENSOL [Concomitant]
  14. BACMIN [Concomitant]
  15. METFORMIN [Concomitant]
  16. DIOVAN [Concomitant]
  17. NITROGLYCERIN [Concomitant]
  18. ZOLPIDEM [Concomitant]

REACTIONS (9)
  - ACTIVITIES OF DAILY LIVING IMPAIRED [None]
  - BRADYCARDIA [None]
  - DIZZINESS [None]
  - FALL [None]
  - GAIT DISTURBANCE [None]
  - HEART RATE IRREGULAR [None]
  - INJURY [None]
  - NAUSEA [None]
  - RENAL FAILURE [None]
